FAERS Safety Report 17548863 (Version 1)
Quarter: 2020Q1

REPORT INFORMATION
  Report Type: Spontaneous
  Country: GB (occurrence: GB)
  Receive Date: 20200317
  Receipt Date: 20200317
  Transmission Date: 20200409
  Serious: Yes (Other)
  Sender: FDA-Public Use
  Company Number: GB-TEVA-2020-GB-1200098

PATIENT
  Age: 75 Year
  Sex: Female
  Weight: 61.8 kg

DRUGS (8)
  1. LISINOPRIL AND HYDROCHLOROTHIAZIDE [Suspect]
     Active Substance: HYDROCHLOROTHIAZIDE\LISINOPRIL
     Indication: HYPERTENSION
     Dosage: 12.5MG/10MG
     Route: 048
     Dates: start: 1990, end: 2020
  2. FOLIC ACID. [Concomitant]
     Active Substance: FOLIC ACID
  3. LANSOPRAZOLE. [Concomitant]
     Active Substance: LANSOPRAZOLE
  4. TIOTROPIUM [Concomitant]
     Active Substance: TIOTROPIUM
  5. ATENOLOL. [Concomitant]
     Active Substance: ATENOLOL
  6. SALBUTAMOL [Concomitant]
     Active Substance: ALBUTEROL
  7. METHOTREXATE. [Suspect]
     Active Substance: METHOTREXATE
     Route: 065
  8. ATORVASTATIN [Concomitant]
     Active Substance: ATORVASTATIN

REACTIONS (4)
  - Angioedema [Recovered/Resolved]
  - Acute kidney injury [Unknown]
  - Salivary gland enlargement [Unknown]
  - Swollen tongue [Unknown]

NARRATIVE: CASE EVENT DATE: 20200214
